FAERS Safety Report 5397407-5 (Version None)
Quarter: 2007Q3

REPORT INFORMATION
  Report Type: 
  Country: None (occurrence: None)
  Receive Date: 20070726
  Receipt Date: 20070724
  Transmission Date: 20080115
  Serious: Yes (Other)
  Sender: FDA-Public Use
  Company Number: PHNU2007DE02633

PATIENT
  Age: 69 Year

DRUGS (3)
  1. AREDIA [Suspect]
     Indication: PLASMACYTOMA
     Dosage: 80 MG, UNK
     Route: 042
     Dates: start: 20020601
  2. CARMEN [Concomitant]
     Indication: HYPERTENSION
     Route: 065
  3. OMNIC [Concomitant]
     Route: 065

REACTIONS (10)
  - BIOPSY SITE UNSPECIFIED ABNORMAL [None]
  - BONE DISORDER [None]
  - DENTAL PROSTHESIS USER [None]
  - JAW OPERATION [None]
  - ORAL SURGERY [None]
  - OSTEONECROSIS [None]
  - OSTEOTOMY [None]
  - PRIMARY SEQUESTRUM [None]
  - TOOTH EXTRACTION [None]
  - X-RAY DENTAL [None]
